FAERS Safety Report 16859849 (Version 1)
Quarter: 2019Q3

REPORT INFORMATION
  Report Type: Spontaneous
  Country: US (occurrence: US)
  Receive Date: 20190927
  Receipt Date: 20190927
  Transmission Date: 20191005
  Serious: No
  Sender: FDA-Public Use
  Company Number: US-009507513-1909USA012216

PATIENT
  Age: 25 Year
  Sex: Male

DRUGS (1)
  1. PROVENTIL [Suspect]
     Active Substance: ALBUTEROL
     Indication: WHEEZING
     Dosage: (STRENGTH: 108), 1-2 PUFFS EVERY 4-6 HOURS AS NEEDED FOR WHEEZING
     Dates: start: 20190923, end: 20190924

REACTIONS (3)
  - Poor quality device used [Unknown]
  - Product packaging quantity issue [Unknown]
  - Product dose omission [Unknown]

NARRATIVE: CASE EVENT DATE: 20190923
